FAERS Safety Report 5133079-2 (Version None)
Quarter: 2006Q4

REPORT INFORMATION
  Report Type: 
  Country: None (occurrence: None)
  Receive Date: 20061017
  Receipt Date: 20061004
  Transmission Date: 20070319
  Serious: Yes (Hospitalization)
  Sender: FDA-Public Use
  Company Number: 2006118328

PATIENT
  Age: 46 Year
  Sex: Female

DRUGS (2)
  1. LINEZOLID [Suspect]
     Indication: STAPHYLOCOCCAL INFECTION
     Dosage: 1200 MG (60 MG, 2IN 1 D), NASOGASTRIC TUBE
     Route: 045
     Dates: start: 20060926
  2. LEVOFLOXACIN [Concomitant]

REACTIONS (4)
  - INFLAMMATION [None]
  - PILOERECTION [None]
  - PLEURAL FIBROSIS [None]
  - URINARY TRACT INFECTION [None]
